FAERS Safety Report 5546955-3 (Version None)
Quarter: 2007Q4

REPORT INFORMATION
  Report Type: 
  Country: None (occurrence: None)
  Receive Date: 20071211
  Receipt Date: 20071205
  Transmission Date: 20080405
  Serious: Yes (Death, Hospitalization)
  Sender: FDA-Public Use
  Company Number: BE-ASTRAZENECA-2007AC02168

PATIENT
  Sex: Female

DRUGS (6)
  1. ARIMIDEX [Suspect]
     Route: 048
     Dates: start: 20040401
  2. NOLVADEX [Suspect]
     Route: 048
  3. CORTICOIDS [Concomitant]
  4. SELOZOK [Concomitant]
     Indication: HYPERTENSION
     Route: 048
     Dates: end: 20071028
  5. LAZIX [Concomitant]
     Indication: OEDEMA
     Route: 048
     Dates: end: 20071028
  6. VENTOLIN [Concomitant]
     Indication: ASTHMA
     Route: 048
     Dates: end: 20071028

REACTIONS (3)
  - ARTHRITIS [None]
  - RENAL FAILURE ACUTE [None]
  - SCLERODERMA [None]
